FAERS Safety Report 5409004-3 (Version None)
Quarter: 2007Q3

REPORT INFORMATION
  Report Type: 
  Country: None (occurrence: None)
  Receive Date: 20070808
  Receipt Date: 20070726
  Transmission Date: 20080115
  Serious: Yes (Death)
  Sender: FDA-Public Use
  Company Number: CN-ELI_LILLY_AND_COMPANY-CN200707006129

PATIENT
  Age: 63 Year
  Sex: Male
  Weight: 60.5 kg

DRUGS (5)
  1. GEMCITABINE HCL [Suspect]
     Indication: NON-SMALL CELL LUNG CANCER
     Dosage: 1000 MG/M2, OTHER
     Route: 042
     Dates: start: 20060801, end: 20060914
  2. CISPLATIN [Suspect]
     Indication: NON-SMALL CELL LUNG CANCER
     Dosage: 50 MG/M2, OTHER
     Route: 042
     Dates: start: 20060321, end: 20060425
  3. ETOPOSIDE [Suspect]
     Indication: NON-SMALL CELL LUNG CANCER
     Dosage: 50 MG/M2, UNKNOWN
     Route: 042
     Dates: start: 20060321, end: 20060422
  4. *RADIATION [Suspect]
     Indication: NON-SMALL CELL LUNG CANCER
     Dosage: 180 D/F, DAILY (1/D)
     Dates: start: 20060321, end: 20060511
  5. DOCETAXEL [Suspect]
     Indication: NON-SMALL CELL LUNG CANCER
     Dosage: 75 MG/M2, UNK
     Route: 042
     Dates: start: 20060801, end: 20060914

REACTIONS (2)
  - HAEMOPTYSIS [None]
  - VASCULAR RUPTURE [None]
